FAERS Safety Report 8623129-0 (Version None)
Quarter: 2012Q3

REPORT INFORMATION
  Report Type: 
  Country: None (occurrence: None)
  Receive Date: 20120827
  Receipt Date: 20120821
  Transmission Date: 20120928
  Serious: Yes (Other)
  Sender: FDA-Public Use
  Company Number: US-JNJFOC-20120703212

PATIENT
  Age: 74 Year
  Sex: Male
  Weight: 108.41 kg

DRUGS (7)
  1. TYLENOL-500 [Suspect]
     Route: 048
  2. ARICEPT [Concomitant]
     Indication: DEMENTIA
     Dosage: FROM 3 MONTHS
     Route: 065
     Dates: start: 20120401
  3. VASOTEC [Concomitant]
     Indication: HYPERTENSION
     Dosage: FROM FIVE YEARS
     Route: 065
     Dates: start: 20070101
  4. TYLENOL-500 [Suspect]
     Indication: ARTHRALGIA
     Dosage: 2 CAPLETS 2 TIMES A DAY
     Route: 048
     Dates: start: 20120601, end: 20120703
  5. VYTORIN [Concomitant]
     Indication: PRODUCT USED FOR UNKNOWN INDICATION
     Route: 065
  6. COUMADIN [Suspect]
     Indication: PRODUCT USED FOR UNKNOWN INDICATION
     Route: 065
  7. COUMADIN [Suspect]
     Route: 065

REACTIONS (3)
  - EXPIRED DRUG ADMINISTERED [None]
  - INTERNATIONAL NORMALISED RATIO INCREASED [None]
  - INTENTIONAL DRUG MISUSE [None]
